FAERS Safety Report 10432279 (Version 1)
Quarter: 2014Q3

REPORT INFORMATION
  Report Type: Spontaneous
  Country: US (occurrence: None)
  Receive Date: 20140903
  Receipt Date: 20140903
  Transmission Date: 20150326
  Serious: Yes (Hospitalization)
  Sender: FDA-Public Use
  Company Number: None

PATIENT
  Age: 46 Year
  Sex: Female
  Weight: 69.22 kg

DRUGS (3)
  1. CISPLATIN. [Suspect]
     Active Substance: CISPLATIN
     Dates: end: 20140811
  2. CRIZOTINIB [Suspect]
     Active Substance: CRIZOTINIB
     Dates: end: 20140528
  3. ETOPOSIDE (VP-16) [Suspect]
     Active Substance: ETOPOSIDE
     Dates: end: 20140808

REACTIONS (7)
  - Hepatotoxicity [None]
  - Odynophagia [None]
  - Dysphagia [None]
  - Deafness [None]
  - Oesophagitis [None]
  - Tinnitus [None]
  - Heart rate increased [None]

NARRATIVE: CASE EVENT DATE: 20140816
